FAERS Safety Report 10389038 (Version 1)
Quarter: 2014Q1

REPORT INFORMATION
  Report Type: Spontaneous
  Country: US (occurrence: None)
  Receive Date: 20140306
  Receipt Date: 20140306
  Transmission Date: 20141002
  Serious: Yes (Hospitalization)
  Sender: FDA-Public Use
  Company Number: 163-21880-13102848

PATIENT
  Age: 81 Year
  Sex: Male

DRUGS (11)
  1. REVLIMID (LENALIDOMIDE) (10 MILLIGRAM, CAPSULES) [Suspect]
     Indication: MYELODYSPLASTIC SYNDROME
     Dosage: 10 MG, 21 IN 28 D, PO
     Route: 048
     Dates: start: 20130925, end: 20131007
  2. AMITRIPTYLINE (AMITRIPTYLINE) [Concomitant]
  3. ASPIRIN (ACETYLSALICYLIC ACID) [Concomitant]
  4. SIMVASTATIN (SIMVASTATIN) [Concomitant]
  5. LORAZEPAM (LORAZEPAM) [Concomitant]
  6. MAGNESIUM (MAGNESIUM) [Concomitant]
  7. VITAMIN C (ASCORBIC ACID) [Concomitant]
  8. FOLIC ACID (FOLIC ACID) [Concomitant]
  9. METOPROLOL (METOPROLOL) [Concomitant]
  10. NITRO-DUR (GLYCERYL TRINITRATE) [Concomitant]
  11. TAMSOLOSIN [Concomitant]

REACTIONS (3)
  - Chest discomfort [None]
  - Fatigue [None]
  - Bone pain [None]
